FAERS Safety Report 6464465-6 (Version None)
Quarter: 2009Q4

REPORT INFORMATION
  Report Type: 
  Country: None (occurrence: None)
  Receive Date: 20091201
  Receipt Date: 20091120
  Transmission Date: 20100525
  Serious: Yes (Hospitalization)
  Sender: FDA-Public Use
  Company Number: GB-JNJFOC-20091106352

PATIENT
  Sex: Female
  Weight: 56 kg

DRUGS (9)
  1. REMICADE [Suspect]
     Route: 042
  2. REMICADE [Suspect]
     Indication: RHEUMATOID ARTHRITIS
     Dosage: DOSE= ^168^
     Route: 042
  3. OTHER BIOLOGICS [Concomitant]
  4. SULFASALAZINE [Concomitant]
  5. METHOTREXATE [Concomitant]
  6. CO-CODAMOL [Concomitant]
  7. DICLOFENAC [Concomitant]
  8. FOLIC ACID [Concomitant]
  9. ZOTON [Concomitant]

REACTIONS (1)
  - BREAST CANCER [None]
